FAERS Safety Report 20493655 (Version 2)
Quarter: 2022Q2

REPORT INFORMATION
  Report Type: Spontaneous
  Country: CO (occurrence: CO)
  Receive Date: 20220221
  Receipt Date: 20220407
  Transmission Date: 20220721
  Serious: Yes (Death, Other)
  Sender: FDA-Public Use
  Company Number: CO-SA-SAC20220217000713

PATIENT
  Age: 57 Year
  Sex: Male

DRUGS (3)
  1. THYMOGLOBULIN [Suspect]
     Active Substance: LAPINE T-LYMPHOCYTE IMMUNE GLOBULIN
     Indication: Bone marrow failure
     Dosage: 2.5 MG/KG PER DAY
     Route: 042
     Dates: start: 20220124, end: 20220127
  2. ELTROMBOPAG [Concomitant]
     Active Substance: ELTROMBOPAG
     Indication: Bone marrow failure
  3. ERYTHROPOETIN [EPOETIN ALFA] [Concomitant]
     Indication: Bone marrow failure

REACTIONS (7)
  - Myocardial infarction [Fatal]
  - Disease complication [Fatal]
  - Arrhythmia [Fatal]
  - Anaemia [Fatal]
  - Gastrointestinal haemorrhage [Unknown]
  - Loss of consciousness [Unknown]
  - Chills [Unknown]

NARRATIVE: CASE EVENT DATE: 20220124
